FAERS Safety Report 15291774 (Version 9)
Quarter: 2020Q1

REPORT INFORMATION
  Report Type: Spontaneous
  Country: FR (occurrence: FR)
  Receive Date: 20180817
  Receipt Date: 20200122
  Transmission Date: 20200409
  Serious: Yes (Hospitalization, Disabling, Other)
  Sender: FDA-Public Use
  Company Number: FR-009507513-1808FRA004203

PATIENT
  Sex: Female
  Weight: 47 kg

DRUGS (2)
  1. NEXPLANON [Suspect]
     Active Substance: ETONOGESTREL
     Dosage: 1 IMPLANT, UNK
     Route: 059
  2. NEXPLANON [Suspect]
     Active Substance: ETONOGESTREL
     Indication: CONTRACEPTION
     Dosage: 1 IMPLANT IN THE LEFT ARM, UNK
     Route: 059
     Dates: start: 20160711, end: 20181115

REACTIONS (25)
  - Cardiac disorder [Unknown]
  - Surgery [Unknown]
  - Back pain [Unknown]
  - Motor dysfunction [Unknown]
  - Pain in extremity [Unknown]
  - Tremor [Unknown]
  - Device deployment issue [Recovered/Resolved]
  - Pain [Unknown]
  - Weight decreased [Unknown]
  - Stress [Unknown]
  - Fungal infection [Unknown]
  - Procedural pain [Unknown]
  - Musculoskeletal chest pain [Unknown]
  - Device embolisation [Recovered/Resolved]
  - Complication of device removal [Recovered/Resolved]
  - Emphysema [Unknown]
  - Ovarian cyst [Unknown]
  - Scar [Unknown]
  - Pneumothorax [Unknown]
  - Nervous system disorder [Unknown]
  - Vulvovaginal pruritus [Unknown]
  - Nerve injury [Unknown]
  - Scar pain [Unknown]
  - Complication associated with device [Recovered/Resolved]
  - Neck pain [Unknown]

NARRATIVE: CASE EVENT DATE: 20160716
